FAERS Safety Report 5564246-1 (Version None)
Quarter: 2007Q4

REPORT INFORMATION
  Report Type: 
  Country: None (occurrence: None)
  Receive Date: 20071212
  Receipt Date: 20071206
  Transmission Date: 20080405
  Serious: Yes (Hospitalization, Other)
  Sender: FDA-Public Use
  Company Number: THQ2007A00713

PATIENT
  Age: 63 Year
  Sex: Male

DRUGS (13)
  1. PIOGLITAZONE HCL [Suspect]
     Indication: TYPE 2 DIABETES MELLITUS
     Dosage: 30 MG (30 MG, 1 IN 1 D), PER ORAL
     Route: 048
     Dates: start: 20030702
  2. DILANTIN [Concomitant]
  3. TEGRETOL (CAREAMAZEPINE) METEORMIN [Concomitant]
  4. METFORMIN HCL [Concomitant]
  5. DIABETA (GLISENCLAMIDE) [Concomitant]
  6. CORGARD [Concomitant]
  7. ACCUPRIL [Concomitant]
  8. FOLIC ACID [Concomitant]
  9. VITAMIN B12 [Concomitant]
  10. ATIVAN [Concomitant]
  11. LIPITOR [Concomitant]
  12. ADALAT [Concomitant]
  13. INSULIN [Concomitant]

REACTIONS (5)
  - ALCOHOL USE [None]
  - INAPPROPRIATE ANTIDIURETIC HORMONE SECRETION [None]
  - IRON DEFICIENCY ANAEMIA [None]
  - RECTAL CANCER [None]
  - URINARY RETENTION [None]
